FAERS Safety Report 6909303-X (Version None)
Quarter: 2010Q3

REPORT INFORMATION
  Report Type: 
  Country: None (occurrence: None)
  Receive Date: 20100805
  Receipt Date: 20100723
  Transmission Date: 20110219
  Serious: Yes (Other)
  Sender: FDA-Public Use
  Company Number: PHHY2010US50134

PATIENT
  Sex: Male

DRUGS (2)
  1. ZOMETA [Suspect]
     Dosage: UNK
  2. METOPROLOL [Concomitant]
     Dosage: 25 MG, BID

REACTIONS (6)
  - BONE DISORDER [None]
  - BONE PAIN [None]
  - EYE INFECTION [None]
  - EYE SWELLING [None]
  - HEART RATE IRREGULAR [None]
  - PURULENT DISCHARGE [None]
